FAERS Safety Report 17520437 (Version 1)
Quarter: 2020Q1

REPORT INFORMATION
  Report Type: Spontaneous
  Country: US (occurrence: US)
  Receive Date: 20200309
  Receipt Date: 20200309
  Transmission Date: 20200409
  Serious: Yes (Other)
  Sender: FDA-Public Use
  Company Number: US-BAUSCH-BL-2020-007138

PATIENT
  Age: 79 Year
  Sex: Male

DRUGS (2)
  1. BEXAROTENE. [Suspect]
     Active Substance: BEXAROTENE
     Indication: CUTANEOUS T-CELL LYMPHOMA
     Route: 048
  2. ROMIDEPSIN. [Concomitant]
     Active Substance: ROMIDEPSIN
     Indication: CUTANEOUS T-CELL LYMPHOMA

REACTIONS (2)
  - Lichen myxoedematosus [Recovering/Resolving]
  - Hypothyroidism [Recovered/Resolved]
